FAERS Safety Report 13081999 (Version 6)
Quarter: 2017Q2

REPORT INFORMATION
  Report Type: Report from Study
  Country: CO (occurrence: CO)
  Receive Date: 20170103
  Receipt Date: 20170601
  Transmission Date: 20170830
  Serious: Yes (Other)
  Sender: FDA-Public Use
  Company Number: CO-SA-2016SA235909

PATIENT
  Age: 22 Year
  Sex: Female
  Weight: 55 kg

DRUGS (2)
  1. LEMTRADA [Suspect]
     Active Substance: ALEMTUZUMAB
     Indication: MULTIPLE SCLEROSIS
     Route: 042
     Dates: start: 20151103, end: 20151107
  2. LEMTRADA [Suspect]
     Active Substance: ALEMTUZUMAB
     Indication: MULTIPLE SCLEROSIS
     Route: 042
     Dates: start: 20161112, end: 20161114

REACTIONS (7)
  - White blood cells urine positive [Recovered/Resolved]
  - Mean platelet volume increased [Recovered/Resolved]
  - Leukopenia [Recovered/Resolved]
  - Lymphocyte percentage decreased [Recovered/Resolved]
  - Neutrophil percentage increased [Recovered/Resolved]
  - Monocyte percentage increased [Recovered/Resolved]
  - Bacteriuria [Recovered/Resolved]

NARRATIVE: CASE EVENT DATE: 20161215
